FAERS Safety Report 14106925 (Version 1)
Quarter: 2017Q4

REPORT INFORMATION
  Report Type: Spontaneous
  Country: FR (occurrence: FR)
  Receive Date: 20171019
  Receipt Date: 20171019
  Transmission Date: 20180321
  Serious: Yes (Other)
  Sender: FDA-Public Use
  Company Number: FR-MERCK KGAA-2030685

PATIENT
  Age: 52 Year
  Sex: Female

DRUGS (1)
  1. NOVOTHYROX [Suspect]
     Active Substance: LEVOTHYROXINE SODIUM
     Indication: HYPOTHYROIDISM
     Route: 048
     Dates: start: 20170318, end: 20170824

REACTIONS (7)
  - Fatigue [Unknown]
  - Insomnia [Unknown]
  - Blood thyroid stimulating hormone normal [Unknown]
  - Irritability [Unknown]
  - Palpitations [Unknown]
  - Tremor [Unknown]
  - Weight decreased [Unknown]

NARRATIVE: CASE EVENT DATE: 20170424
